FAERS Safety Report 5781782-3 (Version None)
Quarter: 2008Q2

REPORT INFORMATION
  Report Type: 
  Country: None (occurrence: None)
  Receive Date: 20080623
  Receipt Date: 20071019
  Transmission Date: 20081010
  Serious: No
  Sender: FDA-Public Use
  Company Number: US-ASTRAZENECA-2007UW24402

PATIENT
  Sex: Female

DRUGS (2)
  1. RHINOCORT [Suspect]
     Dosage: 1 SPRAY EACH NOSTRIL QD
     Route: 045
     Dates: start: 20071011
  2. FLU SHOT [Concomitant]
     Dates: start: 20071001, end: 20071001

REACTIONS (2)
  - PRURITUS [None]
  - RASH [None]
